FAERS Safety Report 17749747 (Version 2)
Quarter: 2020Q2

REPORT INFORMATION
  Report Type: Report from Study
  Country: US (occurrence: US)
  Receive Date: 20200506
  Receipt Date: 20200512
  Transmission Date: 20200714
  Serious: No
  Sender: FDA-Public Use
  Company Number: US-SHIRE-US202015508

PATIENT
  Age: 29 Year
  Sex: Female

DRUGS (1)
  1. TEDUGLUTIDE [Suspect]
     Active Substance: TEDUGLUTIDE
     Indication: SHORT-BOWEL SYNDROME
     Dosage: UNK, 1X/DAY:QD
     Route: 050
     Dates: end: 20200507

REACTIONS (3)
  - Nausea [Unknown]
  - Adverse drug reaction [Unknown]
  - Vomiting [Unknown]

NARRATIVE: CASE EVENT DATE: 20200501
